FAERS Safety Report 4485465-1 (Version None)
Quarter: 2004Q4

REPORT INFORMATION
  Report Type: 
  Country: None (occurrence: None)
  Receive Date: 20041026
  Receipt Date: 20041018
  Transmission Date: 20050328
  Serious: Yes (Other)
  Sender: FDA-Public Use
  Company Number: 200418014US

PATIENT
  Age: 49 Year
  Sex: Female

DRUGS (3)
  1. LOVENOX [Suspect]
     Indication: PROTEIN TOTAL DECREASED
     Route: 051
     Dates: start: 20000101, end: 20040301
  2. PHENOBARBITAL TAB [Concomitant]
     Dosage: DOSE: UNKNOWN
  3. ANTIHYPERTENSIVES [Concomitant]
     Indication: HYPERTENSION
     Dosage: DOSE: UNK

REACTIONS (7)
  - BONE DISORDER [None]
  - JAW DISORDER [None]
  - LUNG INFECTION [None]
  - PULMONARY CONGESTION [None]
  - TOOTH LOSS [None]
  - VOMITING [None]
  - WEIGHT DECREASED [None]
